FAERS Safety Report 5276991-6 (Version None)
Quarter: 2007Q1

REPORT INFORMATION
  Report Type: 
  Country: None (occurrence: None)
  Receive Date: 20070327
  Receipt Date: 20070110
  Transmission Date: 20070707
  Serious: Yes (Life-Threatening)
  Sender: FDA-Public Use
  Company Number: US-BRISTOL-MYERS SQUIBB COMPANY-13615646

PATIENT
  Age: 68 Year
  Sex: Female

DRUGS (12)
  1. ORENCIA [Suspect]
     Indication: RHEUMATOID ARTHRITIS
     Route: 042
     Dates: start: 20061213, end: 20061213
  2. TYLENOL [Concomitant]
  3. CALCIUM [Concomitant]
  4. METHOTREXATE [Concomitant]
  5. ATENOLOL [Concomitant]
  6. OMACOR [Concomitant]
  7. SYNTHROID [Concomitant]
  8. NEXIUM [Concomitant]
  9. DIOVAN HCT [Concomitant]
  10. PREDNISONE [Concomitant]
  11. FOLIC ACID [Concomitant]
  12. ZETIA [Concomitant]

REACTIONS (1)
  - HYPERSENSITIVITY [None]
